FAERS Safety Report 4534588-7 (Version None)
Quarter: 2004Q4

REPORT INFORMATION
  Report Type: 
  Country: None (occurrence: None)
  Receive Date: 20041214
  Receipt Date: 20041026
  Transmission Date: 20050328
  Serious: Yes (Other)
  Sender: FDA-Public Use
  Company Number: 2004241526US

PATIENT
  Age: 44 Year
  Sex: Female
  Weight: 81.6 kg

DRUGS (2)
  1. BEXTRA [Suspect]
     Dosage: 10 MG, QD, ORAL
     Route: 048
     Dates: start: 20040924, end: 20041004
  2. WELLBUTRIN [Concomitant]

REACTIONS (2)
  - ANGINA PECTORIS [None]
  - DYSPNOEA [None]
